FAERS Safety Report 17798108 (Version 2)
Quarter: 2020Q2

REPORT INFORMATION
  Report Type: Spontaneous
  Country: US (occurrence: US)
  Receive Date: 20200518
  Receipt Date: 20200630
  Transmission Date: 20200714
  Serious: No
  Sender: FDA-Public Use
  Company Number: US-VERTEX PHARMACEUTICALS-2020-010794

PATIENT
  Sex: Female
  Weight: 56 kg

DRUGS (3)
  1. TRIKAFTA [Suspect]
     Active Substance: ELEXACAFTOR\IVACAFTOR\TEZACAFTOR
     Dosage: TAKES ORANGE PILL
     Route: 048
  2. TRIKAFTA [Suspect]
     Active Substance: ELEXACAFTOR\IVACAFTOR\TEZACAFTOR
     Dosage: ORANGE PILL EVERYDAY, BLUE PILL EVERY ONCE A WHILE
     Route: 048
  3. TRIKAFTA [Suspect]
     Active Substance: ELEXACAFTOR\IVACAFTOR\TEZACAFTOR
     Indication: CYSTIC FIBROSIS
     Dosage: 100MG ELEXACAFTOR.50MG TEZACAFTOR/75MG IVACAFTOR AND 150MG IVACAFTOR, UNKNOWN FREAQUENCY
     Route: 048
     Dates: start: 20191204

REACTIONS (2)
  - Dizziness [Unknown]
  - Headache [Recovering/Resolving]
